FAERS Safety Report 4631123-X (Version None)
Quarter: 2005Q2

REPORT INFORMATION
  Report Type: 
  Country: None (occurrence: None)
  Receive Date: 20050407
  Receipt Date: 20050407
  Transmission Date: 20051028
  Serious: Yes (Other)
  Sender: FDA-Public Use
  Company Number: None

PATIENT
  Age: 56 Year
  Sex: Female
  Weight: 86.1834 kg

DRUGS (3)
  1. DURAGESIC-50 [Suspect]
     Indication: FIBROMYALGIA
     Dosage: 1   PATCH   SUBCUTANEO
     Route: 058
  2. DURAGESIC-50 [Suspect]
     Indication: MIXED CONNECTIVE TISSUE DISEASE
     Dosage: 1   PATCH   SUBCUTANEO
     Route: 058
  3. DURAGESIC-50 [Suspect]
     Indication: PAIN
     Dosage: 1   PATCH   SUBCUTANEO
     Route: 058

REACTIONS (4)
  - APPLICATION SITE DERMATITIS [None]
  - APPLICATION SITE PRURITUS [None]
  - APPLICATION SITE REACTION [None]
  - SKIN LESION [None]
